FAERS Safety Report 7073316-0 (Version None)
Quarter: 2010Q4

REPORT INFORMATION
  Report Type: 
  Country: None (occurrence: None)
  Receive Date: 20101029
  Receipt Date: 20100527
  Transmission Date: 20110411
  Serious: No
  Sender: FDA-Public Use
  Company Number: A0861718A

PATIENT
  Age: 76 Year
  Sex: Female

DRUGS (8)
  1. ADVAIR DISKUS 100/50 [Suspect]
     Indication: CHRONIC OBSTRUCTIVE PULMONARY DISEASE
     Dosage: 1PUFF TWICE PER DAY
     Route: 055
     Dates: start: 20100501
  2. COMBIVENT [Concomitant]
  3. COZAAR [Concomitant]
  4. AMITRIPTYLINE HCL [Concomitant]
  5. ZANTAC [Concomitant]
  6. DILTIAZEM [Concomitant]
  7. ASPIRIN [Concomitant]
  8. GAS-X [Concomitant]

REACTIONS (3)
  - DYSPHAGIA [None]
  - STOMATITIS [None]
  - SWOLLEN TONGUE [None]
